FAERS Safety Report 12681914 (Version 7)
Quarter: 2020Q3

REPORT INFORMATION
  Report Type: Spontaneous
  Country: US (occurrence: US)
  Receive Date: 20160824
  Receipt Date: 20200818
  Transmission Date: 20201102
  Serious: Yes (Hospitalization)
  Sender: FDA-Public Use
  Company Number: US-ACTELION-A-US2016-141280

PATIENT
  Sex: Male
  Weight: 71.2 kg

DRUGS (5)
  1. TADALAFIL. [Concomitant]
     Active Substance: TADALAFIL
  2. OPSUMIT [Suspect]
     Active Substance: MACITENTAN
     Indication: PULMONARY ARTERIAL HYPERTENSION
     Dosage: 10 MG, QD
     Route: 048
     Dates: start: 20151130
  3. XARELTO [Concomitant]
     Active Substance: RIVAROXABAN
  4. OFEV [Concomitant]
     Active Substance: NINTEDANIB
  5. ADCIRCA [Concomitant]
     Active Substance: TADALAFIL

REACTIONS (8)
  - Lung operation [Unknown]
  - Dyspnoea exertional [Unknown]
  - Dyspnoea [Unknown]
  - Malaise [Unknown]
  - Back pain [Unknown]
  - Back disorder [Unknown]
  - Feeling abnormal [Unknown]
  - Cough [Unknown]
